FAERS Safety Report 8447657-6 (Version None)
Quarter: 2012Q2

REPORT INFORMATION
  Report Type: 
  Country: None (occurrence: None)
  Receive Date: 20120619
  Receipt Date: 20120614
  Transmission Date: 20120825
  Serious: Yes (Death)
  Sender: FDA-Public Use
  Company Number: CN-PFIZER INC-2012142955

PATIENT
  Age: 57 Year
  Sex: Male

DRUGS (1)
  1. SUTENT [Suspect]
     Indication: GASTROINTESTINAL STROMAL TUMOUR

REACTIONS (5)
  - DISEASE PROGRESSION [None]
  - CARDIOPULMONARY FAILURE [None]
  - PLEURAL EFFUSION [None]
  - GASTROINTESTINAL STROMAL TUMOUR [None]
  - ASCITES [None]
